FAERS Safety Report 8956645 (Version 1)
Quarter: 2012Q4

REPORT INFORMATION
  Report Type: Report from Study
  Country: US (occurrence: US)
  Receive Date: 20121210
  Receipt Date: 20121210
  Transmission Date: 20130627
  Serious: Yes (Hospitalization)
  Sender: FDA-Public Use
  Company Number: US-JNJFOC-20121203210

PATIENT

DRUGS (3)
  1. DOXORUBICIN HYDROCHLORIDE (DOXIL) [Suspect]
     Indication: MULTIPLE MYELOMA
     Dosage: 30 or 40 mg/m2 on day 1
     Route: 042
     Dates: start: 20080324
  2. DEXAMETHASONE [Suspect]
     Indication: MULTIPLE MYELOMA
     Dosage: Days 1-4
     Route: 048
  3. REVLIMID [Suspect]
     Indication: MULTIPLE MYELOMA
     Dosage: on 1-21 days every 28 days for 2 cycles beyond best response: 4-8 cycles
     Route: 048

REACTIONS (1)
  - Haemoglobin abnormal [Recovered/Resolved]
